FAERS Safety Report 13639781 (Version 1)
Quarter: 2017Q2

REPORT INFORMATION
  Report Type: Spontaneous
  Country: US (occurrence: US)
  Receive Date: 20170609
  Receipt Date: 20170609
  Transmission Date: 20170830
  Serious: Yes (Other)
  Sender: FDA-Public Use
  Company Number: US-ROCHE-666951

PATIENT
  Sex: Female

DRUGS (1)
  1. KLONOPIN [Suspect]
     Active Substance: CLONAZEPAM
     Indication: ANXIETY
     Dosage: SEVERAL MONTHS
     Route: 048

REACTIONS (3)
  - Rib fracture [Unknown]
  - Seizure [Unknown]
  - Contusion [Unknown]

NARRATIVE: CASE EVENT DATE: 20091025
